FAERS Safety Report 24287645 (Version 2)
Quarter: 2024Q4

REPORT INFORMATION
  Report Type: Spontaneous
  Country: GB (occurrence: GB)
  Receive Date: 20240905
  Receipt Date: 20241203
  Transmission Date: 20250114
  Serious: Yes (Other)
  Sender: SANDOZ
  Company Number: None

PATIENT
  Age: 73 Year
  Sex: Female
  Weight: 52 kg

DRUGS (5)
  1. KEPPRA [Suspect]
     Active Substance: LEVETIRACETAM
     Indication: Frontal lobe epilepsy
     Dosage: 250 MG
     Route: 065
  2. LEVETIRACETAM [Suspect]
     Active Substance: LEVETIRACETAM
     Indication: Frontal lobe epilepsy
     Dosage: 250 MG TO BEGIN WITH AND TO BE INCREMENTALLY INCREASED EVERY FORTNIGHTDOSING REGIMEN AS REPORTED: I
     Route: 065
  3. LAMOTRIGINE [Concomitant]
     Active Substance: LAMOTRIGINE
     Dosage: DOSING REGIMEN AS REPORTED: I STARTED TAKING KEPPRA LEVETIRACETAM AT 250MG AND AT THE SAME TIME TIME
     Route: 065
  4. LAMOTRIGINE [Concomitant]
     Active Substance: LAMOTRIGINE
     Indication: Frontal lobe epilepsy
     Dosage: UNK
     Route: 065
  5. LAMOTRIGINE [Concomitant]
     Active Substance: LAMOTRIGINE
     Dosage: UNK
     Route: 065

REACTIONS (4)
  - Haematoma [Recovered/Resolved]
  - Liver function test increased [Recovered/Resolved with Sequelae]
  - Gastrointestinal pain [Recovered/Resolved]
  - Nausea [Recovered/Resolved]
